FAERS Safety Report 4411835-3 (Version None)
Quarter: 2004Q3

REPORT INFORMATION
  Report Type: 
  Country: None (occurrence: None)
  Receive Date: 20040729
  Receipt Date: 20040729
  Transmission Date: 20050211
  Serious: No
  Sender: FDA-Public Use
  Company Number: None

PATIENT
  Sex: Male
  Weight: 70.7611 kg

DRUGS (3)
  1. GLEEVEC [Suspect]
     Indication: PROSTATE CANCER
     Dosage: 400 MG BID, ORAL
     Route: 048
     Dates: start: 20040325, end: 20040727
  2. FISH OIL [Concomitant]
  3. .. [Concomitant]

REACTIONS (2)
  - DRUG TOXICITY [None]
  - RETINAL EXUDATES [None]
